FAERS Safety Report 4861122-4 (Version None)
Quarter: 2005Q4

REPORT INFORMATION
  Report Type: 
  Country: None (occurrence: None)
  Receive Date: 20051220
  Receipt Date: 20051129
  Transmission Date: 20060501
  Serious: Yes (Other)
  Sender: FDA-Public Use
  Company Number: JP-AVENTIS-200513578JP

PATIENT

DRUGS (4)
  1. LASIX [Suspect]
     Route: 048
  2. LASIX [Suspect]
     Route: 042
  3. VANCOMYCIN HYDROCHLORIDE [Suspect]
  4. TIENAM [Suspect]

REACTIONS (1)
  - STEVENS-JOHNSON SYNDROME [None]
